FAERS Safety Report 4672496-1 (Version None)
Quarter: 2005Q2

REPORT INFORMATION
  Report Type: 
  Country: None (occurrence: None)
  Receive Date: 20050524
  Receipt Date: 20041118
  Transmission Date: 20051028
  Serious: Yes (Hospitalization)
  Sender: FDA-Public Use
  Company Number: 200418958US

PATIENT
  Sex: Male
  Weight: 87.99 kg

DRUGS (6)
  1. LANTUS [Suspect]
     Indication: DIABETES MELLITUS INSULIN-DEPENDENT
     Dosage: DOSE UNIT: UNITS
     Dates: start: 20041001, end: 20041114
  2. NOVOLOG [Concomitant]
     Dosage: DOSE: NOT PROVIDED
  3. PRILOSEC [Concomitant]
     Dosage: DOSE: NOT PROVIDED
  4. PERCOCET [Concomitant]
     Dosage: DOSE: NOT PROVIDED
  5. DARVOCET-N 100 [Concomitant]
     Dosage: DOSE: NOT PROVIDED
  6. HUMULIN 70/30 [Concomitant]
     Dosage: DOSE: NOT PROVIDED

REACTIONS (18)
  - ANAEMIA [None]
  - BACK PAIN [None]
  - CULTURE WOUND POSITIVE [None]
  - ERYTHEMA [None]
  - FACIAL PAIN [None]
  - FEELING HOT [None]
  - HAEMATOCRIT DECREASED [None]
  - HAEMOGLOBIN DECREASED [None]
  - INJECTION SITE ABSCESS [None]
  - INJECTION SITE ERYTHEMA [None]
  - INJECTION SITE IRRITATION [None]
  - PAIN [None]
  - PRURITUS [None]
  - PYREXIA [None]
  - RED BLOOD CELL COUNT DECREASED [None]
  - SKIN IRRITATION [None]
  - STREPTOCOCCAL INFECTION [None]
  - SWELLING [None]
